FAERS Safety Report 4705187-9 (Version None)
Quarter: 2005Q3

REPORT INFORMATION
  Report Type: 
  Country: None (occurrence: None)
  Receive Date: 20050701
  Receipt Date: 20050309
  Transmission Date: 20060218
  Serious: Yes (Hospitalization, Disabling)
  Sender: FDA-Public Use
  Company Number: US-MERCK-0503USA01653

PATIENT
  Age: 58 Year
  Sex: Female

DRUGS (12)
  1. VIOXX [Suspect]
     Indication: OSTEOARTHRITIS
     Route: 048
     Dates: start: 19990101, end: 20041001
  2. VIOXX [Suspect]
     Indication: RHEUMATOID ARTHRITIS
     Route: 048
     Dates: start: 19990101, end: 20041001
  3. ASPIRIN [Concomitant]
     Route: 065
  4. SULFASALAZINE [Concomitant]
     Route: 065
  5. PRAVACHOL [Concomitant]
     Route: 065
  6. PLAVIX [Concomitant]
     Route: 065
  7. METOPROLOL [Concomitant]
     Route: 065
  8. ACETAMINOPHEN AND HYDROCODONE BITARTRATE [Concomitant]
     Route: 065
  9. COMBIVENT [Concomitant]
     Route: 065
  10. PEPCID [Concomitant]
     Route: 065
  11. NORVASC [Concomitant]
     Route: 065
  12. ACTONEL [Concomitant]
     Route: 065

REACTIONS (13)
  - ANGINA UNSTABLE [None]
  - ANHEDONIA [None]
  - ANXIETY [None]
  - BLOOD CHOLESTEROL INCREASED [None]
  - CHRONIC OBSTRUCTIVE PULMONARY DISEASE [None]
  - CORONARY ARTERY DISEASE [None]
  - DEPRESSION [None]
  - HYPERTENSION [None]
  - HYPONATRAEMIA [None]
  - MYOCARDIAL INFARCTION [None]
  - PAIN [None]
  - RESPIRATORY FAILURE [None]
  - TRANSIENT ISCHAEMIC ATTACK [None]
